FAERS Safety Report 5291198-4 (Version None)
Quarter: 2007Q2

REPORT INFORMATION
  Report Type: 
  Country: None (occurrence: None)
  Receive Date: 20070409
  Receipt Date: 20070328
  Transmission Date: 20071010
  Serious: Yes (Hospitalization)
  Sender: FDA-Public Use
  Company Number: DE-PFIZER INC-2007005549

PATIENT
  Sex: Male
  Weight: 90 kg

DRUGS (3)
  1. LYRICA [Suspect]
     Indication: DIABETIC NEUROPATHY
     Dosage: DAILY DOSE:900MG
     Route: 048
     Dates: start: 20060201, end: 20070101
  2. MARCUMAR [Concomitant]
     Indication: ARRHYTHMIA
  3. INSULIN [Concomitant]

REACTIONS (5)
  - HYPOKALAEMIA [None]
  - OEDEMA PERIPHERAL [None]
  - PERICARDIAL EFFUSION [None]
  - PLEURAL EFFUSION [None]
  - WEIGHT INCREASED [None]
